FAERS Safety Report 9675453 (Version 1)
Quarter: 2013Q4

REPORT INFORMATION
  Report Type: Spontaneous
  Country: DE (occurrence: None)
  Receive Date: 20131105
  Receipt Date: 20131105
  Transmission Date: 20140711
  Serious: Yes (Other)
  Sender: FDA-Public Use
  Company Number: 1310-1389

PATIENT
  Sex: Male

DRUGS (1)
  1. EYLEA (AFLIBERCEPT) (SOLUTION FOR INJECTION) (AFLIBERCEPT) [Suspect]
     Route: 031

REACTIONS (1)
  - Retinal disorder [None]
